FAERS Safety Report 8692137 (Version 4)
Quarter: 2012Q4

REPORT INFORMATION
  Report Type: 
  Country: BR (occurrence: BR)
  Receive Date: 20120730
  Receipt Date: 20120910
  Transmission Date: 20130627
  Serious: Yes (Death, Hospitalization, Other)
  Sender: FDA-Public Use
  Company Number: BR-B.I. PHARMACEUTICALS,INC./RIDGEFIELD-2012-BR-00853BR

PATIENT
  Age: 74 Year
  Sex: Female

DRUGS (7)
  1. TRAYENTA [Suspect]
     Indication: TYPE 2 DIABETES MELLITUS
     Dosage: 5 mg
     Route: 048
     Dates: start: 201112, end: 20120219
  2. METFORMIN [Concomitant]
     Indication: TYPE 2 DIABETES MELLITUS
     Dosage: 1700 mg
     Dates: end: 20120219
  3. LOSARTAN [Concomitant]
     Indication: HYPERTENSION
     Dosage: 50 mg
  4. HYDROCHLOROTHIAZIDE [Concomitant]
     Indication: HYPERTENSION
     Dosage: 25 mg
  5. SIMVASTATINA [Concomitant]
     Indication: DYSLIPIDAEMIA
  6. AAS [Concomitant]
  7. SELEGILINA [Concomitant]
     Indication: PARKINSON^S DISEASE

REACTIONS (8)
  - Septic shock [Fatal]
  - Acute prerenal failure [Fatal]
  - Pancreatitis acute [Fatal]
  - Lung infection [Unknown]
  - Pleural effusion [Unknown]
  - Nausea [Unknown]
  - Confusional state [Unknown]
  - Coma [Unknown]
